FAERS Safety Report 17765749 (Version 2)
Quarter: 2020Q3

REPORT INFORMATION
  Report Type: Spontaneous
  Country: FR (occurrence: FR)
  Receive Date: 20200511
  Receipt Date: 20200701
  Transmission Date: 20201102
  Serious: Yes (Other)
  Sender: FDA-Public Use
  Company Number: FR-NEXUS PHARMA-000013

PATIENT
  Age: 52 Year
  Sex: Male

DRUGS (6)
  1. ARSENIC [Suspect]
     Active Substance: ARSENIC
     Indication: ACUTE PROMYELOCYTIC LEUKAEMIA
  2. ACETYLSALICYLIC ACID [Concomitant]
     Active Substance: ASPIRIN
  3. ATORVASTATIN [Concomitant]
     Active Substance: ATORVASTATIN
  4. TRETINOIN. [Concomitant]
     Active Substance: TRETINOIN
     Indication: ACUTE PROMYELOCYTIC LEUKAEMIA
  5. METOPROLOL. [Concomitant]
     Active Substance: METOPROLOL
  6. RAMIPRIL. [Concomitant]
     Active Substance: RAMIPRIL

REACTIONS (1)
  - Osteonecrosis of jaw [Unknown]
